FAERS Safety Report 16868520 (Version 1)
Quarter: 2019Q3

REPORT INFORMATION
  Report Type: Spontaneous
  Country: CA (occurrence: CA)
  Receive Date: 20190930
  Receipt Date: 20190930
  Transmission Date: 20191005
  Serious: Yes (Life-Threatening, Other)
  Sender: FDA-Public Use
  Company Number: CA-PFIZER INC-2019418979

PATIENT
  Age: 24 Year
  Sex: Female

DRUGS (6)
  1. ADVIL [Suspect]
     Active Substance: IBUPROFEN
     Dosage: UNK
     Route: 065
  2. ZYPREXA [Suspect]
     Active Substance: OLANZAPINE
     Dosage: 10 MG, 1X/DAY
     Route: 048
  3. SEROQUEL [Concomitant]
     Active Substance: QUETIAPINE FUMARATE
     Dosage: UNK
     Route: 065
  4. WELLBUTRIN [Suspect]
     Active Substance: BUPROPION HYDROCHLORIDE
     Dosage: UNK
     Route: 065
  5. CLONAZEPAM. [Concomitant]
     Active Substance: CLONAZEPAM
     Dosage: UNK
     Route: 065
  6. ACETAMINOPHEN/DEXTROMETHORPHAN/PHENYLEPHRINE [Suspect]
     Active Substance: ACETAMINOPHEN\DEXTROMETHORPHAN\PHENYLEPHRINE
     Dosage: UNK
     Route: 065

REACTIONS (6)
  - Acidosis [Recovered/Resolved]
  - Depressed level of consciousness [Recovered/Resolved]
  - Suicide attempt [Recovered/Resolved]
  - Generalised tonic-clonic seizure [Recovered/Resolved]
  - Hypoventilation [Recovered/Resolved]
  - Hypercapnia [Recovered/Resolved]
